FAERS Safety Report 15266666 (Version 1)
Quarter: 2018Q3

REPORT INFORMATION
  Report Type: Spontaneous
  Country: JP (occurrence: JP)
  Receive Date: 20180810
  Receipt Date: 20180810
  Transmission Date: 20181010
  Serious: Yes (Death)
  Sender: FDA-Public Use
  Company Number: JP-PFIZER INC-2018319403

PATIENT
  Age: 38 Year
  Sex: Female

DRUGS (5)
  1. METHYLPREDNISOLONE SODIUM SUCCINATE. [Suspect]
     Active Substance: METHYLPREDNISOLONE SODIUM SUCCINATE
     Dosage: 1000 MG, DAILY
  2. PREDONINE [Suspect]
     Active Substance: PREDNISOLONE
     Dosage: 35 MG, DAILY
  3. PREDONINE [Suspect]
     Active Substance: PREDNISOLONE
     Dosage: 40 MG, DAILY
  4. PREDONINE [Suspect]
     Active Substance: PREDNISOLONE
     Dosage: 50 MG, DAILY
  5. PREDONINE [Suspect]
     Active Substance: PREDNISOLONE
     Dosage: 40 MG, DAILY

REACTIONS (2)
  - Hepatic failure [Fatal]
  - Cytomegalovirus infection [Fatal]
